FAERS Safety Report 11360926 (Version 1)
Quarter: 2015Q3

REPORT INFORMATION
  Report Type: Report from Study
  Country: GB (occurrence: GB)
  Receive Date: 20150810
  Receipt Date: 20150810
  Transmission Date: 20151125
  Serious: Yes (Other)
  Sender: FDA-Public Use
  Company Number: GB-AMGEN-GBRNI2015040005

PATIENT
  Age: 76 Year
  Sex: Female
  Weight: 51 kg

DRUGS (13)
  1. IVABRADINE [Suspect]
     Active Substance: IVABRADINE
     Indication: CARDIAC FAILURE
     Dosage: 5 MG, BID
     Route: 048
     Dates: start: 20150219, end: 20150408
  2. ASP [Concomitant]
     Active Substance: ASPIRIN
     Dosage: 75 MG, DAILY
     Dates: start: 20120706
  3. RAMIPRIL. [Concomitant]
     Active Substance: RAMIPRIL
     Dosage: 2.5 MG, UNK
     Dates: start: 201203
  4. FRUSEMIDE                          /00032602/ [Concomitant]
     Dosage: 60 MG/80 MG ON ALTERNATED DAYS
     Dates: start: 20140303
  5. DIAZEPAM. [Concomitant]
     Active Substance: DIAZEPAM
     Dosage: 2 MG, UNK
     Dates: start: 1995
  6. SALBUTAMOL                         /00139502/ [Concomitant]
     Dosage: 200 MUG, ON REQUEST
     Dates: start: 201306
  7. AMITRIPTYLINE [Concomitant]
     Active Substance: AMITRIPTYLINE
     Dosage: 10 MG, DAILY
     Dates: start: 20110427
  8. SERETIDE [Concomitant]
     Active Substance: FLUTICASONE FUROATE\SALMETEROL XINAFOATE
     Dosage: 500 UNK, UNK
     Dates: start: 201406
  9. BISOPROLOL [Concomitant]
     Active Substance: BISOPROLOL
     Dosage: 2.5 MG, DAILY
     Dates: start: 20120323, end: 201502
  10. EKLIRA [Concomitant]
     Active Substance: ACLIDINIUM BROMIDE
     Dosage: 375 MUG, UNK
     Dates: start: 201406
  11. BISOPROLOL [Concomitant]
     Active Substance: BISOPROLOL
     Dosage: 5 MG, UNK
     Dates: start: 201502
  12. BISOPROLOL [Concomitant]
     Active Substance: BISOPROLOL
     Dosage: 7.5 MG, UNK
     Dates: start: 20150402
  13. ROSUVASTATIN [Concomitant]
     Active Substance: ROSUVASTATIN
     Dosage: 5 MG, ON ALTERNATED DAYS
     Dates: start: 20150612

REACTIONS (4)
  - Cardiac failure [Recovered/Resolved]
  - Oedema peripheral [Recovered/Resolved]
  - Dizziness [Recovering/Resolving]
  - Hypertension [Recovered/Resolved]

NARRATIVE: CASE EVENT DATE: 20150211
